FAERS Safety Report 13343248 (Version 1)
Quarter: 2017Q1

REPORT INFORMATION
  Report Type: Spontaneous
  Country: JP (occurrence: JP)
  Receive Date: 20170316
  Receipt Date: 20170316
  Transmission Date: 20170428
  Serious: Yes (Death, Hospitalization)
  Sender: FDA-Public Use
  Company Number: JP-EDENBRIDGE PHARMACEUTICALS, LLC-JP-2017EDE000010

PATIENT
  Age: 30 Year
  Sex: Female

DRUGS (8)
  1. TRIMETHOPRIM. [Suspect]
     Active Substance: TRIMETHOPRIM
     Indication: PULMONARY GRANULOMA
     Dosage: 160 MG, QD
  2. SULFAMETHOXAZOLE [Suspect]
     Active Substance: SULFAMETHOXAZOLE
     Indication: PULMONARY GRANULOMA
     Dosage: 800 MG, QD
  3. PREDNISOLONE SODIUM PHOSPHATE. [Suspect]
     Active Substance: PREDNISOLONE SODIUM PHOSPHATE
     Indication: PULMONARY GRANULOMA
     Dosage: 13 MG, QD
  4. PREDNISOLONE SODIUM PHOSPHATE. [Suspect]
     Active Substance: PREDNISOLONE SODIUM PHOSPHATE
     Indication: HYPOPITUITARISM
     Dosage: 50 MG, QD (DAY 5)
  5. PREDNISOLONE SODIUM PHOSPHATE. [Suspect]
     Active Substance: PREDNISOLONE SODIUM PHOSPHATE
     Dosage: 33 MG, QD (DAY 63)
  6. METHOTREXATE. [Suspect]
     Active Substance: METHOTREXATE
     Indication: PULMONARY GRANULOMA
     Dosage: 15 MG, PER WEEK
  7. RITUXIMAB [Suspect]
     Active Substance: RITUXIMAB
     Indication: PULMONARY GRANULOMA
     Dosage: 375 MG/M2, UNK (DAYS 35, 42, 55, AND 62)
  8. VOGLIBOSE [Concomitant]
     Active Substance: VOGLIBOSE
     Indication: HYPERGLYCAEMIA
     Dosage: UNK

REACTIONS (5)
  - Pancreatitis acute [Not Recovered/Not Resolved]
  - Cytomegalovirus infection [Fatal]
  - Hepatic function abnormal [Not Recovered/Not Resolved]
  - Disseminated varicella zoster vaccine virus infection [Fatal]
  - Disseminated intravascular coagulation [Fatal]
